FAERS Safety Report 8175183-0 (Version None)
Quarter: 2012Q1

REPORT INFORMATION
  Report Type: 
  Country: None (occurrence: None)
  Receive Date: 20120229
  Receipt Date: 20120223
  Transmission Date: 20120608
  Serious: Yes (Hospitalization)
  Sender: FDA-Public Use
  Company Number: DE-ABBOTT-12P-062-0908342-00

PATIENT
  Sex: Male
  Weight: 98.5 kg

DRUGS (2)
  1. ZEMPLAR [Suspect]
     Indication: MESANGIOPROLIFERATIVE GLOMERULONEPHRITIS
  2. BUPRENORPHINE [Suspect]
     Indication: BACK PAIN
     Dosage: UNK.

REACTIONS (4)
  - INTERVERTEBRAL DISCITIS [None]
  - WEIGHT DECREASED [None]
  - HYPERTENSION [None]
  - NAUSEA [None]
